FAERS Safety Report 15976877 (Version 2)
Quarter: 2019Q1

REPORT INFORMATION
  Report Type: Spontaneous
  Country: NL (occurrence: NL)
  Receive Date: 20190218
  Receipt Date: 20190218
  Transmission Date: 20190418
  Serious: Yes (Other)
  Sender: FDA-Public Use
  Company Number: PHHY2019NL001594

PATIENT
  Age: 22 Year
  Sex: Female

DRUGS (3)
  1. INFLIXIMAB [Suspect]
     Active Substance: INFLIXIMAB
     Indication: CRONKHITE-CANADA SYNDROME
  2. INFLIXIMAB [Suspect]
     Active Substance: INFLIXIMAB
     Indication: INFLAMMATORY BOWEL DISEASE
     Dosage: UNK
     Route: 065
  3. PREDNISOLONE. [Suspect]
     Active Substance: PREDNISOLONE
     Indication: INFLAMMATORY BOWEL DISEASE
     Dosage: UNK
     Route: 065

REACTIONS (6)
  - Drug effect incomplete [Unknown]
  - Inflammatory bowel disease [Recovered/Resolved]
  - Off label use [Unknown]
  - Condition aggravated [Unknown]
  - Drug ineffective [Recovered/Resolved]
  - Disease progression [Recovered/Resolved]
